FAERS Safety Report 9782476 (Version 3)
Quarter: 2014Q1

REPORT INFORMATION
  Report Type: Report from Study
  Country: JP (occurrence: JP)
  Receive Date: 20131226
  Receipt Date: 20140306
  Transmission Date: 20141002
  Serious: Yes (Hospitalization, Other)
  Sender: FDA-Public Use
  Company Number: JP-JNJFOC-20130717398

PATIENT
  Age: 84 Year
  Sex: Female
  Weight: 58 kg

DRUGS (15)
  1. SIMPONI [Suspect]
     Indication: RHEUMATOID ARTHRITIS
     Route: 058
     Dates: start: 20131017
  2. SIMPONI [Suspect]
     Indication: RHEUMATOID ARTHRITIS
     Route: 058
     Dates: start: 20130912, end: 20130912
  3. SIMPONI [Suspect]
     Indication: RHEUMATOID ARTHRITIS
     Route: 058
     Dates: start: 20130815, end: 20130815
  4. SIMPONI [Suspect]
     Indication: RHEUMATOID ARTHRITIS
     Route: 058
     Dates: start: 20130718, end: 20130718
  5. SIMPONI [Suspect]
     Indication: RHEUMATOID ARTHRITIS
     Route: 058
     Dates: start: 20130617, end: 20130617
  6. SIMPONI [Suspect]
     Indication: RHEUMATOID ARTHRITIS
     Route: 058
     Dates: start: 20130518, end: 20130518
  7. SIMPONI [Suspect]
     Indication: RHEUMATOID ARTHRITIS
     Route: 058
     Dates: start: 20130420, end: 20130420
  8. METHOTREXATE [Concomitant]
     Indication: RHEUMATOID ARTHRITIS
     Route: 065
  9. METHOTREXATE [Concomitant]
     Indication: RHEUMATOID ARTHRITIS
     Route: 065
  10. CARBOCISTEINE [Concomitant]
     Indication: PROPHYLAXIS
     Route: 048
  11. CLARITHROMYCIN [Concomitant]
     Indication: PROPHYLAXIS
     Route: 048
  12. FOLIC ACID [Concomitant]
     Indication: PROPHYLAXIS
     Route: 065
  13. GASPORT-D [Concomitant]
     Indication: PROPHYLAXIS
     Route: 048
  14. FOSAMAC [Concomitant]
     Route: 048
  15. MAGMITT [Concomitant]
     Indication: CONSTIPATION
     Route: 048

REACTIONS (2)
  - Urinary tract infection [Recovering/Resolving]
  - Rib fracture [Recovering/Resolving]
